FAERS Safety Report 20745572 (Version 1)
Quarter: 2022Q2

REPORT INFORMATION
  Report Type: Spontaneous
  Country: AU (occurrence: AU)
  Receive Date: 20220425
  Receipt Date: 20220425
  Transmission Date: 20220721
  Serious: Yes (Other)
  Sender: FDA-Public Use
  Company Number: None

PATIENT
  Age: 53 Year
  Sex: Female

DRUGS (2)
  1. HYDROCORTISONE [Suspect]
     Active Substance: HYDROCORTISONE
     Indication: Vipoma
     Dosage: 100 MILLIGRAM
     Route: 042
  2. PREDNISOLONE [Suspect]
     Active Substance: PREDNISOLONE
     Indication: Vipoma
     Dosage: UNK
     Route: 048

REACTIONS (3)
  - Cushing^s syndrome [Unknown]
  - Steroid diabetes [Not Recovered/Not Resolved]
  - Off label use [Unknown]
